FAERS Safety Report 8458528-3 (Version None)
Quarter: 2012Q2

REPORT INFORMATION
  Report Type: 
  Country: None (occurrence: None)
  Receive Date: 20120622
  Receipt Date: 20120614
  Transmission Date: 20120825
  Serious: Yes (Death)
  Sender: FDA-Public Use
  Company Number: US-JNJFOC-20040903618

PATIENT
  Age: 31 Year
  Sex: Male

DRUGS (5)
  1. AN UNKNOWN MEDICATION [Suspect]
     Indication: SUICIDE ATTEMPT
     Route: 065
  2. DIPHENHYDRAMINE HCL [Suspect]
     Indication: SUICIDE ATTEMPT
     Route: 065
  3. TRAZODONE HCL [Suspect]
     Indication: SUICIDE ATTEMPT
     Route: 065
  4. VERAPAMIL [Suspect]
     Indication: SUICIDE ATTEMPT
     Route: 065
  5. IBUPROFEN [Suspect]
     Indication: SUICIDE ATTEMPT
     Route: 065

REACTIONS (6)
  - CARDIAC ARREST [None]
  - BRADYCARDIA [None]
  - COMPLETED SUICIDE [None]
  - COMA [None]
  - PULMONARY OEDEMA [None]
  - HYPOTENSION [None]
